FAERS Safety Report 5619939-4 (Version None)
Quarter: 2008Q1

REPORT INFORMATION
  Report Type: 
  Country: None (occurrence: None)
  Receive Date: 20080208
  Receipt Date: 20070803
  Transmission Date: 20080703
  Serious: No
  Sender: FDA-Public Use
  Company Number: US-ABBOTT-07P-163-0376858-00

PATIENT
  Age: 88 Year
  Sex: Female

DRUGS (2)
  1. VICODIN [Suspect]
     Indication: ARTHRALGIA
     Route: 048
  2. PREGABALIN [Suspect]
     Indication: ARTHRALGIA

REACTIONS (1)
  - ADVERSE DRUG REACTION [None]
